FAERS Safety Report 7814210-4 (Version None)
Quarter: 2011Q4

REPORT INFORMATION
  Report Type: 
  Country: None (occurrence: None)
  Receive Date: 20111014
  Receipt Date: 20111007
  Transmission Date: 20120403
  Serious: Yes (Other)
  Sender: FDA-Public Use
  Company Number: US-AMGEN-USASP2011051955

PATIENT
  Sex: Female

DRUGS (4)
  1. ANTIDEPRESSANTS [Concomitant]
     Dosage: UNK
  2. ENBREL [Suspect]
     Indication: RHEUMATOID ARTHRITIS
     Dosage: 50 MG, QWK
     Dates: start: 20100901
  3. METHOTREXATE [Concomitant]
     Dosage: 5 MG, QWK
  4. CORTICOSTEROIDS [Concomitant]
     Dosage: UNK

REACTIONS (5)
  - SUICIDAL IDEATION [None]
  - DEPRESSED MOOD [None]
  - RHEUMATOID ARTHRITIS [None]
  - ANXIETY [None]
  - STOMATITIS [None]
